FAERS Safety Report 6763488-7 (Version None)
Quarter: 2010Q2

REPORT INFORMATION
  Report Type: 
  Country: None (occurrence: None)
  Receive Date: 20100610
  Receipt Date: 20100603
  Transmission Date: 20101027
  Serious: Yes (Death)
  Sender: FDA-Public Use
  Company Number: CA-CELGENEUS-028-20785-10060614

PATIENT
  Sex: Male

DRUGS (4)
  1. THALOMID [Suspect]
     Indication: MULTIPLE MYELOMA
     Route: 048
     Dates: start: 20041101
  2. THALOMID [Suspect]
     Dosage: 100-200MG
     Route: 048
     Dates: start: 20031101, end: 20040401
  3. THALOMID [Suspect]
     Route: 048
     Dates: start: 20040401, end: 20040801
  4. PAMIDRONATE DISODIUM [Concomitant]
     Indication: DRUG USE FOR UNKNOWN INDICATION
     Route: 051

REACTIONS (1)
  - NEOPLASM MALIGNANT [None]
